FAERS Safety Report 4700039-2 (Version None)
Quarter: 2005Q2

REPORT INFORMATION
  Report Type: 
  Country: None (occurrence: None)
  Receive Date: 20050623
  Receipt Date: 20050609
  Transmission Date: 20051028
  Serious: Yes (Hospitalization)
  Sender: FDA-Public Use
  Company Number: 200510913BCC

PATIENT
  Age: 80 Year
  Sex: Male
  Weight: 74.3899 kg

DRUGS (13)
  1. ALEVE [Suspect]
     Indication: DEMENTIA ALZHEIMER'S TYPE
     Dosage: BID, ORAL
     Route: 048
     Dates: start: 20011218, end: 20041218
  2. ALEVE [Suspect]
     Indication: PROPHYLAXIS
     Dosage: BID, ORAL
     Route: 048
     Dates: start: 20011218, end: 20041218
  3. MULTI-VITAMIN [Concomitant]
  4. CALCIUM GLUCONATE [Concomitant]
  5. RISEDRONATE SODIUM [Concomitant]
  6. LEVOXYL [Concomitant]
  7. ASPIRIN [Concomitant]
  8. DOXAZOSIN [Concomitant]
  9. DONEPEZIL HCL [Concomitant]
  10. QUININE SULFATE [Concomitant]
  11. RABEPRAZOLE SODIUM [Concomitant]
  12. FOLTX [Concomitant]
  13. BETAMETHASONE DIPROPIONATE [Concomitant]

REACTIONS (4)
  - ACUTE MYOCARDIAL INFARCTION [None]
  - CORONARY ARTERY OCCLUSION [None]
  - POST PROCEDURAL COMPLICATION [None]
  - SPINAL OPERATION [None]
